FAERS Safety Report 9872159 (Version 1)
Quarter: 2014Q1

REPORT INFORMATION
  Report Type: Spontaneous
  Country: US (occurrence: US)
  Receive Date: 20140205
  Receipt Date: 20140205
  Transmission Date: 20141002
  Serious: No
  Sender: FDA-Public Use
  Company Number: US-ALLERGAN-1306521US

PATIENT
  Age: 67 Year
  Sex: Female

DRUGS (3)
  1. BOTOX [Suspect]
     Indication: MUSCLE SPASMS
     Dosage: 400 UNITS, SINGLE
     Route: 030
     Dates: start: 20130227, end: 20130227
  2. BOTOX [Suspect]
     Dosage: UNK
     Dates: start: 20111122, end: 20111122
  3. BOTOX [Suspect]
     Dosage: UNK

REACTIONS (1)
  - Drug ineffective [Unknown]
